FAERS Safety Report 8177238-3 (Version None)
Quarter: 2012Q1

REPORT INFORMATION
  Report Type: 
  Country: None (occurrence: None)
  Receive Date: 20120301
  Receipt Date: 20120224
  Transmission Date: 20120608
  Serious: Yes (Other)
  Sender: FDA-Public Use
  Company Number: US-BAYER-2012-019973

PATIENT
  Age: 56 Year
  Sex: Male
  Weight: 110 kg

DRUGS (14)
  1. SOLU-MEDROL [Concomitant]
     Dosage: 500 MG, UNK
     Route: 042
     Dates: start: 20060407, end: 20060407
  2. PANCURONIUM BROMIDE [Concomitant]
     Dosage: UNK
     Route: 042
     Dates: start: 20060407, end: 20060407
  3. PLASMA [Concomitant]
     Dosage: 2420 ML, UNK
     Route: 042
  4. HEPARIN [Concomitant]
     Dosage: 41000 U, UNK
     Route: 042
     Dates: start: 20060407, end: 20060407
  5. FENTANYL [Concomitant]
     Dosage: UNK
     Route: 042
     Dates: start: 20060407, end: 20060407
  6. VERSED [Concomitant]
     Dosage: UNK
     Route: 042
     Dates: start: 20060407, end: 20060407
  7. NIPRIDE [Concomitant]
     Dosage: UNK
     Route: 042
     Dates: start: 20060407, end: 20060407
  8. TRASYLOL [Suspect]
     Indication: IMPLANTABLE DEFIBRILLATOR REMOVAL
  9. TRASYLOL [Suspect]
     Indication: HEART TRANSPLANT
     Dosage: 1 ML TEST DOSE, 200 ML LOADING DOSE FOLLWED BY 50CC/HR INFUSION
     Route: 042
     Dates: start: 20060407, end: 20060407
  10. DOBUTAMINE HCL [Concomitant]
     Dosage: UNK
     Route: 042
     Dates: start: 20060407, end: 20060407
  11. MILRINONE [Concomitant]
     Dosage: 5 MG, UNK
     Dates: start: 20060407, end: 20060407
  12. PROTAMINE SULFATE [Concomitant]
     Dosage: 350 MG, UNK
     Dates: start: 20060407, end: 20060407
  13. CEFAZOLIN [Concomitant]
     Dosage: 1 G, UNK
     Route: 042
     Dates: start: 20060407, end: 20060407
  14. PLATELETS [Concomitant]
     Dosage: 549 ML, UNK
     Route: 042
     Dates: start: 20060407, end: 20060407

REACTIONS (1)
  - RENAL FAILURE ACUTE [None]
